FAERS Safety Report 19604835 (Version 1)
Quarter: 2021Q3

REPORT INFORMATION
  Report Type: Spontaneous
  Country: US (occurrence: US)
  Receive Date: 20210723
  Receipt Date: 20210723
  Transmission Date: 20211014
  Serious: Yes (Death)
  Sender: FDA-Public Use
  Company Number: US-TASMAN PHARMA, INC.-2021TSM00055

PATIENT
  Age: 41 Year
  Sex: Male

DRUGS (9)
  1. FLUOXETINE [Concomitant]
     Active Substance: FLUOXETINE HYDROCHLORIDE
     Dosage: 60 MG
  2. FISH OIL [Concomitant]
     Active Substance: FISH OIL
  3. WHITE LUNG SUPPLEMENT [Concomitant]
  4. SENEXON [Concomitant]
     Active Substance: SENNOSIDES A AND B
  5. LORAZEPAM. [Concomitant]
     Active Substance: LORAZEPAM
     Dosage: 1 MG, 3X/DAY
  6. VERSACLOZ [Suspect]
     Active Substance: CLOZAPINE
     Indication: PSYCHOTIC DISORDER
     Dosage: 350 MG (7 ML), 1X/DAY AT BEDTIME
     Route: 048
     Dates: start: 2018
  7. NALTREXONE [Concomitant]
     Active Substance: NALTREXONE
     Dosage: 50 MG
  8. MULTIVITAMIN [Concomitant]
     Active Substance: VITAMINS
  9. HARMONY D MANOSE [Concomitant]

REACTIONS (1)
  - Death [Fatal]

NARRATIVE: CASE EVENT DATE: 20210706
